FAERS Safety Report 18540278 (Version 1)
Quarter: 2020Q4

REPORT INFORMATION
  Report Type: Spontaneous
  Country: FR (occurrence: FR)
  Receive Date: 20201124
  Receipt Date: 20201124
  Transmission Date: 20210114
  Serious: Yes (Death, Hospitalization, Other)
  Sender: FDA-Public Use
  Company Number: NVSC2020FR313213

PATIENT
  Age: 58 Year
  Sex: Female

DRUGS (1)
  1. ADALIMUMAB [Suspect]
     Active Substance: ADALIMUMAB
     Indication: POUCHITIS
     Dosage: 40 MG BIW
     Route: 058

REACTIONS (5)
  - Immunodeficiency [Fatal]
  - Off label use [Fatal]
  - Herpes simplex hepatitis [Fatal]
  - Acute kidney injury [Fatal]
  - Systemic candida [Fatal]
